FAERS Safety Report 7373205-8 (Version None)
Quarter: 2011Q1

REPORT INFORMATION
  Report Type: 
  Country: None (occurrence: None)
  Receive Date: 20110324
  Receipt Date: 20110322
  Transmission Date: 20110831
  Serious: Yes (Death, Other)
  Sender: FDA-Public Use
  Company Number: DE-ABBOTT-11P-062-0708981-00

PATIENT
  Sex: Female
  Weight: 60 kg

DRUGS (3)
  1. PREDNI [Concomitant]
     Indication: PRODUCT USED FOR UNKNOWN INDICATION
     Dosage: 2.5 MG
  2. HUMIRA [Suspect]
     Indication: RHEUMATOID FACTOR POSITIVE
     Dates: start: 20050901
  3. HUMIRA [Suspect]
     Indication: ANTI-CYCLIC CITRULLINATED PEPTIDE ANTIBODY POSITIVE

REACTIONS (1)
  - SUDDEN DEATH [None]
